FAERS Safety Report 14573976 (Version 1)
Quarter: 2018Q1

REPORT INFORMATION
  Report Type: Spontaneous
  Country: GB (occurrence: GB)
  Receive Date: 20180226
  Receipt Date: 20180226
  Transmission Date: 20180509
  Serious: Yes (Hospitalization)
  Sender: FDA-Public Use
  Company Number: GB-PFIZER INC-2018076127

PATIENT
  Age: 45 Year
  Sex: Female
  Weight: 100 kg

DRUGS (8)
  1. FILGRASTIM [Concomitant]
     Active Substance: FILGRASTIM
     Dosage: UNK
  2. CYCLOPHOSPHAMIDE. [Suspect]
     Active Substance: CYCLOPHOSPHAMIDE
     Indication: BREAST CANCER STAGE III
     Dosage: UNK
     Route: 042
     Dates: start: 20180112
  3. LANSOPRAZOLE. [Concomitant]
     Active Substance: LANSOPRAZOLE
     Dosage: UNK
  4. RANITIDINE. [Concomitant]
     Active Substance: RANITIDINE
     Dosage: UNK
  5. APREPITANT. [Concomitant]
     Active Substance: APREPITANT
     Dosage: UNK
  6. FLUOROURACIL. [Suspect]
     Active Substance: FLUOROURACIL
     Indication: BREAST CANCER STAGE III
     Dosage: UNK
     Route: 042
     Dates: start: 20180112
  7. EPIRUBICIN HCL [Suspect]
     Active Substance: EPIRUBICIN HYDROCHLORIDE
     Indication: BREAST CANCER STAGE III
     Dosage: UNK
     Route: 042
     Dates: start: 20180112
  8. IBUPROFEN. [Concomitant]
     Active Substance: IBUPROFEN
     Dosage: UNK

REACTIONS (10)
  - Cough [Unknown]
  - Asthenia [Unknown]
  - Pyrexia [Unknown]
  - Hyperhidrosis [Unknown]
  - Dizziness [Unknown]
  - Headache [Unknown]
  - Malaise [Unknown]
  - Dyspnoea [Unknown]
  - Neutropenic sepsis [Unknown]
  - Abdominal distension [Unknown]

NARRATIVE: CASE EVENT DATE: 20180125
